FAERS Safety Report 5793392-2 (Version None)
Quarter: 2008Q2

REPORT INFORMATION
  Report Type: 
  Country: None (occurrence: None)
  Receive Date: 20080627
  Receipt Date: 20080620
  Transmission Date: 20081010
  Serious: Yes (Hospitalization)
  Sender: FDA-Public Use
  Company Number: US-GENENTECH-259295

PATIENT
  Age: 50 Year
  Sex: Male

DRUGS (13)
  1. BEVACIZUMAB [Suspect]
     Indication: GLIOBLASTOMA
     Dosage: UNK, UNK
     Route: 042
     Dates: start: 20080123
  2. ENZASTAURIN [Suspect]
     Indication: GLIOBLASTOMA
     Dosage: UNK, UNK
     Dates: start: 20080123
  3. LANTUS [Concomitant]
     Indication: DRUG USE FOR UNKNOWN INDICATION
     Dosage: 36 UNIT, QD
  4. LAMICTAL [Concomitant]
     Indication: DRUG USE FOR UNKNOWN INDICATION
     Dosage: 300 MG, BID
  5. BENAZEPRIL HYDROCHLORIDE [Concomitant]
     Indication: DRUG USE FOR UNKNOWN INDICATION
     Dosage: 40 MG, QD
  6. LYRICA [Concomitant]
     Indication: DRUG USE FOR UNKNOWN INDICATION
     Dosage: 75 MG, BID
  7. NEXIUM [Concomitant]
     Indication: DRUG USE FOR UNKNOWN INDICATION
     Dosage: 40 MG, QD
  8. TOPROL-XL [Concomitant]
     Indication: DRUG USE FOR UNKNOWN INDICATION
     Dosage: 25 MG, QD
  9. NEURONTIN [Concomitant]
     Indication: DRUG USE FOR UNKNOWN INDICATION
     Dosage: 300 MG, TID
  10. BUMEX [Concomitant]
     Indication: DRUG USE FOR UNKNOWN INDICATION
  11. STEROIDS - UNKNOWN TYPE [Concomitant]
     Indication: DRUG USE FOR UNKNOWN INDICATION
     Dosage: 4 MG, QD
  12. STEROIDS - UNKNOWN TYPE [Concomitant]
     Dosage: 3 MG, QD
  13. STEROIDS - UNKNOWN TYPE [Concomitant]
     Dosage: 2 MG, QD

REACTIONS (1)
  - CONVULSION [None]
